FAERS Safety Report 9890286 (Version 1)
Quarter: 2014Q1

REPORT INFORMATION
  Report Type: Report from Study
  Country: US (occurrence: US)
  Receive Date: 20140212
  Receipt Date: 20140212
  Transmission Date: 20141002
  Serious: Yes (Hospitalization)
  Sender: FDA-Public Use
  Company Number: US-ROCHE-1344556

PATIENT
  Sex: Female

DRUGS (34)
  1. XOLAIR [Suspect]
     Indication: ASTHMA
     Route: 058
     Dates: start: 20100615
  2. PREDNISONE [Concomitant]
     Indication: ASTHMA
     Route: 065
  3. SINGULAIR [Concomitant]
  4. SYMBICORT [Concomitant]
  5. FLONASE [Concomitant]
  6. PROMETHAZINE/CODEINE [Concomitant]
  7. COMBIVENT [Concomitant]
  8. XOPENEX HFA [Concomitant]
  9. DULERA [Concomitant]
  10. LEVAQUIN [Concomitant]
     Route: 065
  11. IPRATROPIUM BROMIDE [Concomitant]
  12. ALBUTEROL SULFATE [Concomitant]
  13. WELLBUTRIN [Concomitant]
  14. PROZAC [Concomitant]
  15. ZYRTEC [Concomitant]
  16. NASONEX [Concomitant]
  17. PROTONIX (UNITED STATES) [Concomitant]
  18. VICOPROFEN [Concomitant]
  19. PRAVASTATIN [Concomitant]
     Route: 065
  20. LOSARTAN [Concomitant]
  21. EPIPEN 2-PAK [Concomitant]
  22. ZYFLO CR [Concomitant]
  23. DOXYCYCLINE MONOHYDRATE [Concomitant]
  24. METFORMIN HYDROCHLORIDE [Concomitant]
     Route: 065
  25. SIMVASTATIN [Concomitant]
     Route: 065
  26. NEXIUM [Concomitant]
  27. MUCINEX D [Concomitant]
  28. BETHANECHOL CHLORIDE [Concomitant]
  29. XYZAL [Concomitant]
  30. OMNARIS [Concomitant]
  31. AZITHROMYCIN [Concomitant]
     Route: 065
  32. ASTEPRO [Concomitant]
  33. BIAXIN [Concomitant]
  34. ASMANEX [Concomitant]

REACTIONS (20)
  - Cough [Unknown]
  - Wheezing [Unknown]
  - Pyrexia [Unknown]
  - Asthma [Unknown]
  - Haemoptysis [Unknown]
  - Sputum discoloured [Unknown]
  - Bronchitis [Unknown]
  - Rhinorrhoea [Unknown]
  - Oropharyngeal pain [Unknown]
  - Throat irritation [Unknown]
  - Dyspnoea [Unknown]
  - Fatigue [Unknown]
  - Lymphadenopathy [Unknown]
  - Oral candidiasis [Unknown]
  - Rhinitis allergic [Unknown]
  - Barrett^s oesophagus [Unknown]
  - Conjunctivitis allergic [Unknown]
  - Idiopathic urticaria [Unknown]
  - Tachycardia [Unknown]
  - Nasal obstruction [Unknown]
